FAERS Safety Report 5888045-6 (Version None)
Quarter: 2008Q3

REPORT INFORMATION
  Report Type: 
  Country: None (occurrence: None)
  Receive Date: 20080916
  Receipt Date: 20080908
  Transmission Date: 20090109
  Serious: Yes (Hospitalization)
  Sender: FDA-Public Use
  Company Number: 2008BI023280

PATIENT
  Age: 67 Year
  Sex: Male

DRUGS (1)
  1. TYSABRI [Suspect]
     Indication: CROHN'S DISEASE
     Dosage: 300 MG,QM,IV
     Route: 042
     Dates: start: 20080404

REACTIONS (3)
  - ATRIAL FIBRILLATION [None]
  - MYOPATHY [None]
  - RESPIRATORY DISORDER [None]
